FAERS Safety Report 8611916 (Version 31)
Quarter: 2013Q4

REPORT INFORMATION
  Report Type: Spontaneous
  Country: IE (occurrence: IE)
  Receive Date: 20120613
  Receipt Date: 20131224
  Transmission Date: 20140711
  Serious: Yes (Hospitalization, Other)
  Sender: FDA-Public Use
  Company Number: PHFR2012IE003331

PATIENT
  Age: 49 Year
  Sex: Male

DRUGS (12)
  1. CLOZARIL [Suspect]
     Indication: SCHIZOPHRENIA
     Dosage: 225 MG, QD
     Route: 048
     Dates: start: 20090520
  2. CLOZARIL [Suspect]
     Dosage: 325 MG, QD
     Route: 048
  3. METFORMIN [Concomitant]
     Indication: DIABETES MELLITUS
     Dosage: 500 MG, DAILY
     Route: 048
  4. CRESTOR [Concomitant]
     Indication: BLOOD CHOLESTEROL INCREASED
     Dosage: 20 MG, DAILY
  5. LANSOPRAZOLE [Concomitant]
     Indication: GASTROOESOPHAGEAL REFLUX DISEASE
     Dosage: 30 MG, DAILY
     Route: 048
  6. KWELL [Concomitant]
     Dosage: UNK
     Route: 048
  7. VENTOLIN [Concomitant]
     Dosage: UNK
  8. MORIAL [Concomitant]
     Dosage: UNK
     Route: 048
  9. GLIBET//GLICLAZIDE [Concomitant]
     Dosage: 10 MG MORNING
     Route: 048
  10. GLUCOPHAGE [Concomitant]
     Dosage: 1 G, BID
  11. SERETIDE EVOHALER [Concomitant]
     Dosage: UNK UKN, PRN
  12. RADIOTHERAPY [Concomitant]
     Dosage: UNK

REACTIONS (16)
  - Small cell lung cancer recurrent [Not Recovered/Not Resolved]
  - Small cell lung cancer metastatic [Not Recovered/Not Resolved]
  - Lower respiratory tract infection [Recovering/Resolving]
  - Chest pain [Recovering/Resolving]
  - Asthenia [Unknown]
  - Hypotension [Unknown]
  - Dizziness [Unknown]
  - Haemoglobin increased [Unknown]
  - Neutrophil count decreased [Recovered/Resolved]
  - White blood cell count decreased [Recovered/Resolved]
  - White blood cell count increased [Unknown]
  - Neutrophil count increased [Unknown]
  - Platelet count decreased [Not Recovered/Not Resolved]
  - Differential white blood cell count abnormal [Recovered/Resolved]
  - Haemoglobin decreased [Recovered/Resolved]
  - Platelet count increased [Recovered/Resolved]
